FAERS Safety Report 11167751 (Version 1)
Quarter: 2015Q2

REPORT INFORMATION
  Report Type: Report from Study
  Country: US (occurrence: None)
  Receive Date: 20150603
  Receipt Date: 20150603
  Transmission Date: 20150821
  Serious: Yes (Hospitalization)
  Sender: FDA-Public Use
  Company Number: 2014DEPUS00597

PATIENT
  Age: 53 Year
  Sex: Male
  Weight: 99.1 kg

DRUGS (20)
  1. DIFLUCAN [Concomitant]
     Active Substance: FLUCONAZOLE
  2. ZOFRAN (ONDANSETRON HYDROCHLORIDE) [Concomitant]
  3. BACTRIM DS (SULFAMETHOXAZOLE,TRIMETHOPRIM) [Concomitant]
  4. CIPRO (CIPROFLOXACIN HYDROCHLORIDE) [Concomitant]
  5. MIRALAX (MACROGOL) [Concomitant]
  6. DEPOCYT [Suspect]
     Active Substance: CYTARABINE
     Indication: ACUTE LYMPHOCYTIC LEUKAEMIA
     Dosage: ON DAY 1 (09APR14) AND 15 (23APR14) DURING CYCLE 1. DOSE PER PROTOCOL: 25MG, INTRATHECAL
     Route: 037
     Dates: start: 20140409
  7. ZYRTEC [Concomitant]
     Active Substance: CETIRIZINE HYDROCHLORIDE
  8. NEXIUM [Concomitant]
     Active Substance: ESOMEPRAZOLE MAGNESIUM
  9. PRED FORT (PREDNISOLONE ACETATE), 1% [Concomitant]
  10. NEULASTA [Concomitant]
     Active Substance: PEGFILGRASTIM
  11. ETOPOSIDE (ETOPOSIDE PHOSPHATE) [Concomitant]
     Active Substance: ETOPOSIDE
  12. COLACE [Concomitant]
     Active Substance: DOCUSATE SODIUM
  13. MULTIVITAMIN (VITAMINS NOS) [Concomitant]
     Active Substance: VITAMINS
  14. LOVENOX (ENOXAPARIN SODUM) [Concomitant]
  15. COMPAZINE [Concomitant]
     Active Substance: PROCHLORPERAZINE MALEATE
  16. PEG/L-ASPARAGINASE [Concomitant]
     Active Substance: PEGASPARGASE
  17. SENOKOT (SENNOSIDE A+B) [Concomitant]
  18. METHOTREXATE LPF (METHOTREXATE SODIUM) [Concomitant]
  19. TYLENOL [Concomitant]
     Active Substance: ACETAMINOPHEN
  20. ZOVIRAX [Concomitant]
     Active Substance: ACYCLOVIR

REACTIONS (3)
  - Bone pain [None]
  - Febrile neutropenia [None]
  - Mouth ulceration [None]

NARRATIVE: CASE EVENT DATE: 20140709
